FAERS Safety Report 23829538 (Version 3)
Quarter: 2024Q3

REPORT INFORMATION
  Report Type: Spontaneous
  Country: US (occurrence: None)
  Receive Date: 20240508
  Receipt Date: 20240802
  Transmission Date: 20241017
  Serious: No
  Sender: ASTRAZENECA
  Company Number: 2024A084370

PATIENT
  Age: 22887 Day
  Sex: Female

DRUGS (1)
  1. BYDUREON BCISE [Suspect]
     Active Substance: EXENATIDE
     Dosage: 2.0MG UNKNOWN
     Route: 058
     Dates: start: 20240405

REACTIONS (9)
  - Injection site warmth [Unknown]
  - Injection site swelling [Unknown]
  - Injection site pain [Unknown]
  - Injection site bruising [Unknown]
  - Injection site mass [Unknown]
  - Pain [Unknown]
  - Device malfunction [Unknown]
  - Product preparation issue [Unknown]
  - Incorrect dose administered by device [Unknown]

NARRATIVE: CASE EVENT DATE: 20240405
